FAERS Safety Report 18550922 (Version 1)
Quarter: 2020Q4

REPORT INFORMATION
  Report Type: Report from Study
  Country: US (occurrence: US)
  Receive Date: 20201126
  Receipt Date: 20201126
  Transmission Date: 20210114
  Serious: No
  Sender: FDA-Public Use
  Company Number: US-BIOVITRUM-2020US6475

PATIENT
  Age: 2 Year
  Sex: Female

DRUGS (4)
  1. TYLENOL [Concomitant]
     Active Substance: ACETAMINOPHEN
  2. MOTRIN [Concomitant]
     Active Substance: IBUPROFEN
  3. KINERET [Suspect]
     Active Substance: ANAKINRA
     Indication: PYREXIA
     Dosage: DAILY AS NEEDED
     Route: 058
     Dates: start: 20201014
  4. CEPHALEXIN. [Concomitant]
     Active Substance: CEPHALEXIN

REACTIONS (7)
  - Off label use [Not Recovered/Not Resolved]
  - Nasopharyngitis [Unknown]
  - Illness [Unknown]
  - Product dose omission issue [Unknown]
  - Body temperature increased [Unknown]
  - Intentional product misuse [Unknown]
  - Rhinorrhoea [Unknown]

NARRATIVE: CASE EVENT DATE: 20201014
